FAERS Safety Report 23615497 (Version 2)
Quarter: 2024Q1

REPORT INFORMATION
  Report Type: Report from Study
  Country: CO (occurrence: CO)
  Receive Date: 20240311
  Receipt Date: 20240315
  Transmission Date: 20240410
  Serious: Yes (Death, Other)
  Sender: FDA-Public Use
  Company Number: CO-TAKEDA-2024TUS022048

PATIENT
  Age: 54 Year
  Sex: Male
  Weight: 64 kg

DRUGS (1)
  1. PONATINIB [Suspect]
     Active Substance: PONATINIB
     Indication: Chronic myeloid leukaemia
     Dosage: 45 MILLIGRAM, QD
     Route: 048
     Dates: start: 20210625, end: 202402

REACTIONS (1)
  - Death [Fatal]

NARRATIVE: CASE EVENT DATE: 20240302
